FAERS Safety Report 7699466-3 (Version None)
Quarter: 2011Q3

REPORT INFORMATION
  Report Type: 
  Country: None (occurrence: None)
  Receive Date: 20110820
  Receipt Date: 20110104
  Transmission Date: 20111222
  Serious: No
  Sender: FDA-Public Use
  Company Number: US-ALLERGAN-1100054US

PATIENT
  Age: 58 Year
  Sex: Female

DRUGS (4)
  1. SANCTURA XR [Suspect]
     Dosage: 20 MG, BID
     Route: 048
     Dates: end: 20110101
  2. ATENOLOL [Concomitant]
     Indication: HEART RATE INCREASED
     Dosage: 25 MG, QD
     Route: 048
     Dates: start: 20070101
  3. SANCTURA XR [Suspect]
     Indication: HYPERTONIC BLADDER
     Dosage: 20 MG, QD
     Route: 048
     Dates: start: 20101101
  4. VAGIFEM [Concomitant]
     Indication: HORMONE REPLACEMENT THERAPY
     Dosage: 10 A?G, QD
     Route: 048
     Dates: start: 20110101

REACTIONS (2)
  - THERAPEUTIC RESPONSE DECREASED [None]
  - DRUG INEFFECTIVE [None]
